FAERS Safety Report 7941679-7 (Version None)
Quarter: 2011Q4

REPORT INFORMATION
  Report Type: 
  Country: None (occurrence: None)
  Receive Date: 20111128
  Receipt Date: 20111128
  Transmission Date: 20120403
  Serious: Yes (Life-Threatening, Hospitalization)
  Sender: FDA-Public Use
  Company Number: None

PATIENT
  Age: 42 Year
  Sex: Male
  Weight: 97.522 kg

DRUGS (1)
  1. FLUOCINONIDE [Suspect]
     Indication: PSORIASIS
     Dosage: APPLY AFFECTED AREAS
     Route: 061
     Dates: start: 20111001, end: 20111124

REACTIONS (3)
  - BLOOD PRESSURE INCREASED [None]
  - MALAISE [None]
  - DRUG WITHDRAWAL SYNDROME [None]
